FAERS Safety Report 6219527-5 (Version None)
Quarter: 2009Q2

REPORT INFORMATION
  Report Type: 
  Country: None (occurrence: None)
  Receive Date: 20090609
  Receipt Date: 20090526
  Transmission Date: 20091009
  Serious: Yes (Hospitalization)
  Sender: FDA-Public Use
  Company Number: FR-PFIZER INC-2008051075

PATIENT
  Age: 43 Year

DRUGS (15)
  1. MARAVIROC [Suspect]
     Indication: HIV INFECTION
     Dosage: 150 MG, 2X/DAY
     Dates: start: 20080107
  2. NORVIR [Concomitant]
     Route: 048
     Dates: start: 20071116
  3. PREZISTA [Concomitant]
     Route: 048
     Dates: start: 20071116
  4. SKENAN [Concomitant]
     Route: 048
     Dates: start: 20071214
  5. CHONDROSULF [Concomitant]
     Route: 048
     Dates: start: 20071116
  6. LYRICA [Concomitant]
     Route: 048
     Dates: start: 20070307
  7. BEFLAVINE [Concomitant]
     Route: 048
     Dates: start: 20080107
  8. SELENIUM [Concomitant]
     Route: 048
     Dates: start: 20080107
  9. MULTI-VITAMINS [Concomitant]
     Route: 048
     Dates: start: 20080107
  10. TOCO [Concomitant]
     Route: 048
     Dates: start: 20080107
  11. MOPRAL [Concomitant]
     Route: 048
     Dates: start: 20080326
  12. SERETIDE DISKUS [Concomitant]
     Route: 055
     Dates: start: 20080225
  13. VENTOLIN [Concomitant]
     Route: 055
     Dates: start: 20011204
  14. PROZAC [Concomitant]
     Route: 048
     Dates: start: 20080325
  15. TAREG [Concomitant]
     Route: 048
     Dates: start: 20080107

REACTIONS (1)
  - LUNG DISORDER [None]
